FAERS Safety Report 9475546 (Version 1)
Quarter: 2013Q3

REPORT INFORMATION
  Report Type: Spontaneous
  Country: US (occurrence: US)
  Receive Date: 20130826
  Receipt Date: 20130826
  Transmission Date: 20140515
  Serious: No
  Sender: FDA-Public Use
  Company Number: US-009507513-1308USA009773

PATIENT
  Sex: Male

DRUGS (2)
  1. VICTRELIS [Suspect]
     Indication: HEPATITIS C
     Dosage: 4 DF, Q8H
     Route: 048
     Dates: start: 20130803
  2. REBETOL [Suspect]
     Dosage: 3 DF, Q12H
     Route: 048
     Dates: start: 20130710

REACTIONS (2)
  - Dysphagia [Not Recovered/Not Resolved]
  - Circumstance or information capable of leading to medication error [Unknown]
